FAERS Safety Report 22056934 (Version 1)
Quarter: 2023Q1

REPORT INFORMATION
  Report Type: Spontaneous
  Country: FI (occurrence: FI)
  Receive Date: 20230303
  Receipt Date: 20230303
  Transmission Date: 20230418
  Serious: Yes (Other)
  Sender: FDA-Public Use
  Company Number: None

PATIENT
  Age: 46 Year
  Sex: Male

DRUGS (1)
  1. DOXYCYCLINE [Suspect]
     Active Substance: DOXYCYCLINE
     Indication: Lyme disease
     Dosage: 300 MILLIGRAM DAILY;
     Dates: start: 202110, end: 20211109

REACTIONS (4)
  - Anxiety [Not Recovered/Not Resolved]
  - Tearfulness [Not Recovered/Not Resolved]
  - Suicidal ideation [Not Recovered/Not Resolved]
  - Nightmare [Not Recovered/Not Resolved]

NARRATIVE: CASE EVENT DATE: 20211101
